FAERS Safety Report 25453993 (Version 1)
Quarter: 2025Q2

REPORT INFORMATION
  Report Type: Spontaneous
  Country: GB (occurrence: GB)
  Receive Date: 20250619
  Receipt Date: 20250619
  Transmission Date: 20250716
  Serious: Yes (Life-Threatening, Disabling, Other)
  Sender: LEO PHARM
  Company Number: None

PATIENT
  Age: 60 Year
  Sex: Female
  Weight: 64 kg

DRUGS (3)
  1. PROTOPIC [Suspect]
     Active Substance: TACROLIMUS
     Indication: Product used for unknown indication
  2. CLOBETASOL [Suspect]
     Active Substance: CLOBETASOL
     Indication: Eczema
     Dates: end: 20240320
  3. MOMETASONE FUROATE [Suspect]
     Active Substance: MOMETASONE FUROATE
     Indication: Product used for unknown indication

REACTIONS (11)
  - Burning sensation [Unknown]
  - Rash erythematous [Not Recovered/Not Resolved]
  - Skin infection [Unknown]
  - Temperature regulation disorder [Unknown]
  - Skin exfoliation [Unknown]
  - Pruritus [Unknown]
  - Fatigue [Unknown]
  - Tremor [Unknown]
  - Weight decreased [Unknown]
  - Chills [Unknown]
  - Lymphadenopathy [Unknown]

NARRATIVE: CASE EVENT DATE: 20200106
